FAERS Safety Report 8604356-5 (Version None)
Quarter: 2012Q3

REPORT INFORMATION
  Report Type: 
  Country: None (occurrence: None)
  Receive Date: 20120820
  Receipt Date: 20120809
  Transmission Date: 20120928
  Serious: Yes (Death, Life-Threatening, Hospitalization)
  Sender: FDA-Public Use
  Company Number: JP-JNJFOC-20120806409

PATIENT
  Sex: Female
  Weight: 47.7 kg

DRUGS (10)
  1. FOLIC ACID [Concomitant]
     Route: 048
  2. EDIROL [Concomitant]
     Indication: OSTEOPOROSIS
     Route: 048
  3. REMICADE [Suspect]
     Indication: RHEUMATOID ARTHRITIS
     Route: 042
     Dates: start: 20111206
  4. LANSOPRAZOLE [Concomitant]
     Indication: PROPHYLAXIS AGAINST GASTROINTESTINAL ULCER
     Route: 048
  5. REMICADE [Suspect]
     Route: 042
     Dates: start: 20100903
  6. REMICADE [Suspect]
     Dosage: 20TH DOSE
     Route: 042
     Dates: start: 20120601
  7. PREDNISOLONE [Suspect]
     Indication: RHEUMATOID ARTHRITIS
     Route: 048
  8. REMICADE [Suspect]
     Route: 042
     Dates: start: 20090821
  9. CEFAZOLIN SODIUM [Concomitant]
     Indication: INFECTION
     Route: 042
  10. WARFARIN SODIUM [Concomitant]
     Indication: DEEP VEIN THROMBOSIS
     Route: 048

REACTIONS (9)
  - PLATELET COUNT DECREASED [None]
  - CARDIO-RESPIRATORY ARREST [None]
  - DEVICE RELATED INFECTION [None]
  - ARTHRALGIA [None]
  - PYREXIA [None]
  - SEPTIC SHOCK [None]
  - METABOLIC ACIDOSIS [None]
  - HEPATIC FUNCTION ABNORMAL [None]
  - DISSEMINATED INTRAVASCULAR COAGULATION [None]
